FAERS Safety Report 10563340 (Version 2)
Quarter: 2014Q4

REPORT INFORMATION
  Report Type: Spontaneous
  Country: US (occurrence: US)
  Receive Date: 20141104
  Receipt Date: 20141104
  Transmission Date: 20150529
  Serious: Yes (Hospitalization, Other)
  Sender: FDA-Public Use
  Company Number: US-GLAXOSMITHKLINE-A0878388A

PATIENT
  Sex: Male

DRUGS (2)
  1. AVANDARYL [Suspect]
     Active Substance: GLIMEPIRIDE\ROSIGLITAZONE MALEATE
     Indication: DIABETES MELLITUS
     Route: 048
     Dates: start: 20061107, end: 20070526
  2. AVANDIA [Suspect]
     Active Substance: ROSIGLITAZONE MALEATE
     Indication: DIABETES MELLITUS
     Route: 048
     Dates: start: 200706

REACTIONS (6)
  - Coronary artery disease [Unknown]
  - Angina unstable [Unknown]
  - Myocardial ischaemia [Unknown]
  - Stent placement [Unknown]
  - Thrombosis in device [Unknown]
  - Myocardial infarction [Not Recovered/Not Resolved]
